FAERS Safety Report 5023077-1 (Version None)
Quarter: 2006Q2

REPORT INFORMATION
  Report Type: 
  Country: None (occurrence: None)
  Receive Date: 20060502
  Receipt Date: 20050613
  Transmission Date: 20061013
  Serious: Yes (Hospitalization, Other)
  Sender: FDA-Public Use
  Company Number: PHEH2005US06760

PATIENT
  Age: 62 Year
  Weight: 113.4 kg

DRUGS (6)
  1. LOTREL [Suspect]
     Dosage: 10 AM AML/20MG BEN, QD, ORAL
     Route: 048
     Dates: start: 20040823
  2. AVANDIA [Concomitant]
  3. HYDROCHLOROTHIAZIDE [Concomitant]
  4. MOBIC [Concomitant]
  5. ZELNORM /USA/ (TEGASEROD) [Concomitant]
  6. XANAX [Concomitant]

REACTIONS (1)
  - ANGIONEUROTIC OEDEMA [None]
